FAERS Safety Report 9816559 (Version 1)
Quarter: 2014Q1

REPORT INFORMATION
  Report Type: Spontaneous
  Country: US (occurrence: US)
  Receive Date: 20140114
  Receipt Date: 20140114
  Transmission Date: 20141002
  Serious: No
  Sender: FDA-Public Use
  Company Number: US-PFIZER INC-2014011775

PATIENT
  Age: 66 Year
  Sex: Male
  Weight: 83.9 kg

DRUGS (5)
  1. LYRICA [Suspect]
     Indication: FIBROMYALGIA
     Dosage: 75 MG, 2X/DAY
     Route: 048
     Dates: start: 20140110
  2. CELEBREX [Concomitant]
     Dosage: 400 MG, UNK
  3. VALTREX [Concomitant]
     Dosage: UNK
  4. LEVOTHYROXINE [Concomitant]
     Dosage: 150 UG, UNK
  5. ESCITALOPRAM [Concomitant]
     Dosage: 10 MG, UNK

REACTIONS (1)
  - Therapeutic response unexpected [Unknown]
